FAERS Safety Report 6609275-1 (Version None)
Quarter: 2010Q1

REPORT INFORMATION
  Report Type: 
  Country: None (occurrence: None)
  Receive Date: 20100224
  Receipt Date: 20100209
  Transmission Date: 20100710
  Serious: Yes (Death, Hospitalization)
  Sender: FDA-Public Use
  Company Number: 2010000502

PATIENT
  Sex: Male

DRUGS (9)
  1. ERLOTINIB                    (ERLOTINIB) [Suspect]
     Indication: NON-SMALL CELL LUNG CANCER METASTATIC
     Dosage: (150 MG, QD), ORAL
     Route: 048
     Dates: start: 20081007, end: 20081121
  2. LEVOFLOXACIN [Concomitant]
  3. DEXAMETHASONE TAB [Concomitant]
  4. ACETAMINOPHEN [Concomitant]
  5. ALBUTEROL [Concomitant]
  6. HOMATROPINE (HOMATROPINE) [Concomitant]
  7. HYDROCODONE (HYDROCODONE) [Concomitant]
  8. IPRATROPIUM BROMIDE [Concomitant]
  9. PANTOPRAZOLE SODIUM [Concomitant]

REACTIONS (14)
  - BLOOD GLUCOSE INCREASED [None]
  - COUGH [None]
  - DISEASE PROGRESSION [None]
  - DYSPNOEA [None]
  - HAEMOGLOBIN DECREASED [None]
  - HAEMOPTYSIS [None]
  - HYPERSENSITIVITY [None]
  - NON-SMALL CELL LUNG CANCER [None]
  - PAIN [None]
  - PNEUMONIA [None]
  - PYREXIA [None]
  - RESPIRATORY DISTRESS [None]
  - TACHYCARDIA [None]
  - URTICARIA [None]
